FAERS Safety Report 5868824-1 (Version None)
Quarter: 2008Q3

REPORT INFORMATION
  Report Type: 
  Country: None (occurrence: None)
  Receive Date: 20080903
  Receipt Date: 20080827
  Transmission Date: 20090109
  Serious: Yes (Hospitalization, Other)
  Sender: FDA-Public Use
  Company Number: US-ASTRAZENECA-2008UW07767

PATIENT
  Age: 38 Year
  Sex: Female
  Weight: 77.1 kg

DRUGS (20)
  1. SEROQUEL [Suspect]
     Indication: SCHIZOPHRENIA
     Dosage: 25 MG, 100 MG
     Route: 048
     Dates: start: 20000124
  2. SEROQUEL [Suspect]
     Indication: BIPOLAR DISORDER
     Dosage: 25 MG, 100 MG
     Route: 048
     Dates: start: 20000124
  3. SEROQUEL [Suspect]
     Indication: MAJOR DEPRESSION
     Dosage: 25 MG, 100 MG
     Route: 048
     Dates: start: 20000124
  4. SEROQUEL [Suspect]
     Dosage: 25MG, 100MG
     Route: 048
     Dates: start: 20000323, end: 20000815
  5. SEROQUEL [Suspect]
     Dosage: 25MG, 100MG
     Route: 048
     Dates: start: 20000323, end: 20000815
  6. SEROQUEL [Suspect]
     Dosage: 25MG, 100MG
     Route: 048
     Dates: start: 20000323, end: 20000815
  7. SEROQUEL [Suspect]
     Dosage: 25MG, 100MG, 300MG
     Route: 048
     Dates: start: 20001209, end: 20030919
  8. SEROQUEL [Suspect]
     Dosage: 25MG, 100MG, 300MG
     Route: 048
     Dates: start: 20001209, end: 20030919
  9. SEROQUEL [Suspect]
     Dosage: 25MG, 100MG, 300MG
     Route: 048
     Dates: start: 20001209, end: 20030919
  10. SEROQUEL [Suspect]
     Dosage: 25MG, 100MG, 200MG, 300MG
     Route: 048
     Dates: start: 20010212, end: 20061109
  11. SEROQUEL [Suspect]
     Dosage: 25MG, 100MG, 200MG, 300MG
     Route: 048
     Dates: start: 20010212, end: 20061109
  12. SEROQUEL [Suspect]
     Dosage: 25MG, 100MG, 200MG, 300MG
     Route: 048
     Dates: start: 20010212, end: 20061109
  13. CLOZARIL [Concomitant]
  14. RISPERDAL [Concomitant]
  15. THORAZINE [Concomitant]
     Dates: start: 20060101
  16. ZYPREXA [Concomitant]
  17. TRAMADOL HCL [Concomitant]
     Dates: start: 20010101, end: 20020101
  18. METHADONE HCL [Concomitant]
     Dates: start: 20060101
  19. DEXATRIM [Concomitant]
     Dates: start: 19790101, end: 19810101
  20. DEXATRIM [Concomitant]
     Dates: start: 20060101

REACTIONS (9)
  - BLOOD CHOLESTEROL INCREASED [None]
  - BORDERLINE PERSONALITY DISORDER [None]
  - CONVULSION [None]
  - DIABETES MELLITUS [None]
  - EPILEPSY [None]
  - HYPERSENSITIVITY [None]
  - INTERVERTEBRAL DISC DEGENERATION [None]
  - PANCREATITIS CHRONIC [None]
  - PANIC ATTACK [None]
